FAERS Safety Report 4579816-7 (Version None)
Quarter: 2005Q1

REPORT INFORMATION
  Report Type: 
  Country: None (occurrence: None)
  Receive Date: 20050210
  Receipt Date: 20050203
  Transmission Date: 20050727
  Serious: Yes (Hospitalization)
  Sender: FDA-Public Use
  Company Number: 2005025302

PATIENT
  Age: 48 Year
  Sex: Male

DRUGS (1)
  1. LIPITOR [Suspect]
     Indication: BLOOD CHOLESTEROL INCREASED
     Dosage: 20 MG (80 MG, HALF TABLET EVERY OTHER DAY) ORAL
     Route: 048
     Dates: start: 20040820

REACTIONS (2)
  - FACIAL OPERATION [None]
  - NASAL SEPTAL OPERATION [None]
